FAERS Safety Report 4919706-0 (Version None)
Quarter: 2006Q1

REPORT INFORMATION
  Report Type: 
  Country: None (occurrence: None)
  Receive Date: 20060221
  Receipt Date: 20060207
  Transmission Date: 20060701
  Serious: Yes (Death, Hospitalization)
  Sender: FDA-Public Use
  Company Number: 2006P1000103

PATIENT
  Age: 74 Year
  Sex: Female

DRUGS (4)
  1. RETEPLASE (RETEPLASE) [Suspect]
     Indication: ACUTE MYOCARDIAL INFARCTION
     Dosage: 10 IU; IV
     Route: 042
     Dates: start: 20051218, end: 20051218
  2. ENOXAPARIN SODIUM [Suspect]
     Dosage: SC
     Route: 058
     Dates: end: 20051218
  3. SELOKEN [Concomitant]
  4. ATACAND [Concomitant]

REACTIONS (3)
  - BLINDNESS UNILATERAL [None]
  - CEREBRAL HAEMORRHAGE [None]
  - VISUAL FIELD DEFECT [None]
